FAERS Safety Report 9711674 (Version 2)
Quarter: 2014Q2

REPORT INFORMATION
  Report Type: Spontaneous
  Country: US (occurrence: US)
  Receive Date: 20131126
  Receipt Date: 20140510
  Transmission Date: 20141212
  Serious: No
  Sender: FDA-Public Use
  Company Number: US-BRISTOL-MYERS SQUIBB COMPANY-19092089

PATIENT
  Age: 55 Year
  Sex: Female
  Weight: 104.31 kg

DRUGS (2)
  1. BYDUREON [Suspect]
     Indication: TYPE 2 DIABETES MELLITUS
     Dosage: NO OF INJECTIONS:7?LOT#73262,EXPDT:1MAR16
     Route: 058
  2. JANUMET [Concomitant]

REACTIONS (11)
  - Weight decreased [Unknown]
  - Decreased appetite [Unknown]
  - Headache [Not Recovered/Not Resolved]
  - Nausea [Unknown]
  - Injection site pain [Recovered/Resolved]
  - Product quality issue [Unknown]
  - Injection site extravasation [Unknown]
  - Underdose [Unknown]
  - Injection site mass [Unknown]
  - Injection site pain [Unknown]
  - Drug dose omission [Unknown]
